FAERS Safety Report 8615618-X (Version None)
Quarter: 2012Q3

REPORT INFORMATION
  Report Type: 
  Country: None (occurrence: None)
  Receive Date: 20120823
  Receipt Date: 20120813
  Transmission Date: 20120928
  Serious: Yes (Other)
  Sender: FDA-Public Use
  Company Number: US-ELI_LILLY_AND_COMPANY-US201010005239

PATIENT
  Sex: Female

DRUGS (4)
  1. FORTEO [Suspect]
     Indication: OSTEOPOROSIS
     Dosage: 20 UG, QD
  2. FORTEO [Suspect]
     Dosage: 20 UG, QD
  3. FORTEO [Suspect]
     Dosage: 20 UG, QD
     Dates: end: 20120712
  4. FORTEO [Suspect]
     Dosage: 20 UG, QD

REACTIONS (9)
  - MEMORY IMPAIRMENT [None]
  - DEPRESSION [None]
  - FEELING ABNORMAL [None]
  - OVERDOSE [None]
  - DRUG INEFFECTIVE [None]
  - BONE DENSITY DECREASED [None]
  - COMPRESSION FRACTURE [None]
  - INCORRECT STORAGE OF DRUG [None]
  - BACK PAIN [None]
